FAERS Safety Report 22034948 (Version 2)
Quarter: 2023Q2

REPORT INFORMATION
  Report Type: Spontaneous
  Country: US (occurrence: US)
  Receive Date: 20230224
  Receipt Date: 20230505
  Transmission Date: 20230722
  Serious: Yes (Other)
  Sender: FDA-Public Use
  Company Number: US-PFIZER INC-202300076611

PATIENT
  Age: 64 Year
  Sex: Female
  Weight: 67.12 kg

DRUGS (13)
  1. XELJANZ XR [Suspect]
     Active Substance: TOFACITINIB CITRATE
     Indication: Arthritis
     Dosage: 11 MG, 1X/DAY
     Route: 048
     Dates: start: 20220405
  2. XELJANZ XR [Suspect]
     Active Substance: TOFACITINIB CITRATE
     Indication: Rash
  3. VITAMIN C [Concomitant]
     Active Substance: ASCORBIC ACID
     Dosage: 100 MG, 1X/DAY
     Dates: start: 2022
  4. CITRACAL + D3 [Concomitant]
     Dosage: 1200 MG, 1X/DAY
  5. POTASSIUM CHLORIDE [Concomitant]
     Active Substance: POTASSIUM CHLORIDE
     Dosage: 25 MG, 1X/DAY
  6. DULOXETINE [Concomitant]
     Active Substance: DULOXETINE
     Dosage: UNK, 1X/DAY
  7. PREDNISONE [Concomitant]
     Active Substance: PREDNISONE
     Dosage: UNK, 2X/DAY
  8. GABAPENTIN [Concomitant]
     Active Substance: GABAPENTIN
     Dosage: 600 MG, 1X/DAY
  9. TRIAMTERENE [Concomitant]
     Active Substance: TRIAMTERENE
     Dosage: UNK, 1X/DAY
  10. IBUPROFEN [Concomitant]
     Active Substance: IBUPROFEN
     Dosage: UNK, AS NEEDED (600 WHEN NEED)
  11. TRAMADOL [Concomitant]
     Active Substance: TRAMADOL
     Dosage: UNK, 1X/DAY
  12. ALENDRONATE SODIUM [Concomitant]
     Active Substance: ALENDRONATE SODIUM
     Dosage: UNK, WEEKLY
  13. COCONUT OIL [Concomitant]
     Active Substance: COCONUT OIL
     Dosage: 1000 MG, 1X/DAY
     Dates: start: 2022

REACTIONS (8)
  - Pulmonary mass [Unknown]
  - Rash [Not Recovered/Not Resolved]
  - Off label use [Unknown]
  - Erythema [Unknown]
  - Muscle tightness [Unknown]
  - Rash pruritic [Unknown]
  - Swelling face [Recovering/Resolving]
  - Skin burning sensation [Recovering/Resolving]

NARRATIVE: CASE EVENT DATE: 20220101
